FAERS Safety Report 23927650 (Version 1)
Quarter: 2024Q2

REPORT INFORMATION
  Report Type: Spontaneous
  Country: US (occurrence: US)
  Receive Date: 20240531
  Receipt Date: 20240531
  Transmission Date: 20240716
  Serious: Yes (Other)
  Sender: FDA-Public Use
  Company Number: US-BEH-2024172834

PATIENT
  Age: 23 Year
  Sex: Female

DRUGS (7)
  1. HUMAN IMMUNOGLOBULIN G [Suspect]
     Active Substance: HUMAN IMMUNOGLOBULIN G
     Indication: Alloimmunisation
     Dosage: 1G/KG
     Route: 042
  2. ALBUMIN HUMAN [Suspect]
     Active Substance: ALBUMIN HUMAN
     Indication: Plasmapheresis
     Dosage: UNK UNK, BIW
     Route: 065
  3. CALCIUM GLUCONATE [Suspect]
     Active Substance: CALCIUM GLUCONATE
     Route: 065
  4. FOLATE SODIUM [Suspect]
     Active Substance: FOLATE SODIUM
     Route: 065
  5. IRON [Suspect]
     Active Substance: IRON
     Route: 048
  6. METHYLCOBALAMIN [Suspect]
     Active Substance: METHYLCOBALAMIN
     Route: 065
  7. OXYTOCIN [Suspect]
     Active Substance: OXYTOCIN
     Route: 065

REACTIONS (3)
  - Hypotension [Unknown]
  - Maternal exposure during pregnancy [Unknown]
  - Off label use [Unknown]
